FAERS Safety Report 10805439 (Version 1)
Quarter: 2015Q1

REPORT INFORMATION
  Report Type: Report from Study
  Country: US (occurrence: US)
  Receive Date: 20150217
  Receipt Date: 20150217
  Transmission Date: 20150721
  Serious: No
  Sender: FDA-Public Use
  Company Number: US-ABBVIE-14K-163-1257964-00

PATIENT
  Age: 66 Year
  Sex: Female

DRUGS (10)
  1. AMITRIPTYLINE [Concomitant]
     Active Substance: AMITRIPTYLINE
     Indication: VERTIGO
  2. GLYCERIN. [Concomitant]
     Active Substance: GLYCERIN
     Indication: PRURITUS
     Dosage: APPLIED TO SKIN
  3. HUMIRA [Suspect]
     Active Substance: ADALIMUMAB
     Indication: PSORIASIS
     Dates: start: 20140608
  4. SYNTHROID [Concomitant]
     Active Substance: LEVOTHYROXINE SODIUM
     Indication: THYROID DISORDER
  5. IMITREX [Concomitant]
     Active Substance: SUMATRIPTAN\SUMATRIPTAN SUCCINATE
     Indication: MIGRAINE
  6. TRICOR [Concomitant]
     Active Substance: FENOFIBRATE
     Indication: BLOOD CHOLESTEROL ABNORMAL
  7. AMITRIPTYLINE [Concomitant]
     Active Substance: AMITRIPTYLINE
     Indication: INSOMNIA
  8. MAXALT [Concomitant]
     Active Substance: RIZATRIPTAN BENZOATE
     Indication: HEADACHE
  9. AMITRIPTYLINE [Concomitant]
     Active Substance: AMITRIPTYLINE
     Indication: FIBROMYALGIA
     Dosage: 5/12.5 MG
  10. FLEXERIL [Concomitant]
     Active Substance: CYCLOBENZAPRINE HYDROCHLORIDE
     Indication: MIGRAINE

REACTIONS (3)
  - Headache [Not Recovered/Not Resolved]
  - Sinus disorder [Not Recovered/Not Resolved]
  - Injection site pain [Recovering/Resolving]

NARRATIVE: CASE EVENT DATE: 20140608
